FAERS Safety Report 9241199 (Version 3)
Quarter: 2013Q2

REPORT INFORMATION
  Report Type: Spontaneous
  Country: US (occurrence: US)
  Receive Date: 20130419
  Receipt Date: 20130610
  Transmission Date: 20140414
  Serious: Yes (Hospitalization, Other)
  Sender: FDA-Public Use
  Company Number: US-BIOGENIDEC-2013BI032875

PATIENT
  Age: 46 Year
  Sex: Female

DRUGS (13)
  1. TYSABRI [Suspect]
     Indication: MULTIPLE SCLEROSIS
     Route: 042
     Dates: start: 20080506, end: 20110421
  2. TYSABRI [Suspect]
     Indication: MULTIPLE SCLEROSIS
     Route: 042
     Dates: start: 20120416, end: 20130314
  3. TYSABRI [Suspect]
     Indication: MULTIPLE SCLEROSIS
     Dates: start: 20130416
  4. AVONEX [Concomitant]
     Indication: MULTIPLE SCLEROSIS
     Route: 030
     Dates: start: 20060121
  5. FIORICET [Concomitant]
     Indication: MIGRAINE
  6. LORAZEPAM [Concomitant]
     Route: 048
  7. EFFEXOR [Concomitant]
     Route: 048
  8. RELPAX [Concomitant]
     Indication: HEADACHE
  9. AMITRIPTYLINE HCL [Concomitant]
     Route: 048
  10. ALDACTONE [Concomitant]
  11. TOPIRAMATE [Concomitant]
  12. FIORICET/CODEINE [Concomitant]
  13. CLARITIN [Concomitant]

REACTIONS (5)
  - Multiple sclerosis relapse [Unknown]
  - Abdominal pain lower [Unknown]
  - Migraine [Unknown]
  - Diarrhoea [Unknown]
  - Constipation [Unknown]
